FAERS Safety Report 24983363 (Version 9)
Quarter: 2025Q3

REPORT INFORMATION
  Report Type: Report from Study
  Country: AR (occurrence: AR)
  Receive Date: 20250219
  Receipt Date: 20250715
  Transmission Date: 20251020
  Serious: Yes (Other)
  Sender: AMGEN
  Company Number: AR-AMGEN-ARGSL2024224952

PATIENT
  Age: 70 Year
  Sex: Female

DRUGS (5)
  1. VECTIBIX [Suspect]
     Active Substance: PANITUMUMAB
     Indication: Colorectal cancer
     Route: 065
     Dates: start: 20241104
  2. VECTIBIX [Suspect]
     Active Substance: PANITUMUMAB
     Route: 065
     Dates: end: 20250527
  3. CAPECITABINE [Suspect]
     Active Substance: CAPECITABINE
     Indication: Product used for unknown indication
     Dosage: 8 DOSAGE FORM, QD
     Route: 065
  4. CAPECITABINE [Suspect]
     Active Substance: CAPECITABINE
     Dosage: 4 DOSAGE FORM, QD
     Route: 065
  5. DECADRON [Concomitant]
     Active Substance: DEXAMETHASONE
     Route: 065

REACTIONS (44)
  - Rectal haemorrhage [Unknown]
  - Face injury [Unknown]
  - Sensitive skin [Unknown]
  - Lip haemorrhage [Unknown]
  - Mouth haemorrhage [Unknown]
  - Bedridden [Unknown]
  - Musculoskeletal pain [Unknown]
  - Nail injury [Unknown]
  - Oral pain [Unknown]
  - Headache [Unknown]
  - Skin lesion [Unknown]
  - Pain [Unknown]
  - Skin irritation [Unknown]
  - Alopecia [Unknown]
  - Dysphonia [Unknown]
  - Depressed mood [Unknown]
  - Abnormal dreams [Unknown]
  - Laryngitis [Unknown]
  - Mobility decreased [Unknown]
  - Emotional disorder [Unknown]
  - Lip blister [Unknown]
  - Coccydynia [Unknown]
  - Malaise [Unknown]
  - Platelet count decreased [Unknown]
  - Crying [Unknown]
  - Haemorrhoids [Unknown]
  - Catheter site haemorrhage [Unknown]
  - Pain in extremity [Unknown]
  - Hair colour changes [Unknown]
  - Limb injury [Unknown]
  - Eyelash hyperpigmentation [Unknown]
  - Lip pain [Unknown]
  - Eating disorder [Unknown]
  - Eye irritation [Unknown]
  - Stomatitis [Unknown]
  - Fatigue [Unknown]
  - Nausea [Unknown]
  - Asthenia [Unknown]
  - Pruritus [Unknown]
  - Skin fissures [Not Recovered/Not Resolved]
  - Cough [Unknown]
  - Localised infection [Unknown]
  - Rash [Unknown]
  - Acne [Unknown]

NARRATIVE: CASE EVENT DATE: 20240101
